FAERS Safety Report 9697503 (Version 16)
Quarter: 2020Q1

REPORT INFORMATION
  Report Type: Report from Study
  Country: CA (occurrence: CA)
  Receive Date: 20131120
  Receipt Date: 20200204
  Transmission Date: 20200409
  Serious: Yes (Other)
  Sender: FDA-Public Use
  Company Number: CA-ROCHE-1305299

PATIENT
  Age: 76 Year
  Sex: Female
  Weight: 68.9 kg

DRUGS (11)
  1. HCTZ [Concomitant]
     Active Substance: HYDROCHLOROTHIAZIDE
     Route: 048
  2. PREDNISONE. [Suspect]
     Active Substance: PREDNISONE
     Indication: PRODUCT USED FOR UNKNOWN INDICATION
     Route: 048
     Dates: end: 201312
  3. RITUXAN [Suspect]
     Active Substance: RITUXIMAB
     Dosage: 07/AUG/2015, MOST RECENT DOSE
     Route: 042
     Dates: start: 20140610
  4. NORVASC [Concomitant]
     Active Substance: AMLODIPINE BESYLATE
     Route: 048
  5. RITUXAN [Suspect]
     Active Substance: RITUXIMAB
     Indication: ANTI-NEUTROPHIL CYTOPLASMIC ANTIBODY POSITIVE VASCULITIS
     Route: 042
     Dates: start: 20131218
  6. OMEPRAZOLE. [Concomitant]
     Active Substance: OMEPRAZOLE
  7. LOSEC [Concomitant]
     Active Substance: OMEPRAZOLE
     Route: 065
  8. HYDERM [HYDROCORTISONE] [Concomitant]
     Route: 065
  9. CETRIZINE [Concomitant]
     Active Substance: CETIRIZINE HYDROCHLORIDE
     Route: 048
  10. ACETYLSALICYLIC ACID [Concomitant]
     Active Substance: ASPIRIN
     Route: 065
  11. IRBESARTAN. [Concomitant]
     Active Substance: IRBESARTAN
     Route: 048

REACTIONS (31)
  - Hallucination [Recovered/Resolved]
  - Swelling face [Unknown]
  - Dysgeusia [Unknown]
  - Back pain [Unknown]
  - Blood pressure diastolic abnormal [Unknown]
  - Mass [Not Recovered/Not Resolved]
  - Alopecia [Unknown]
  - Infusion related reaction [Unknown]
  - Blood pressure fluctuation [Unknown]
  - Heart rate decreased [Unknown]
  - Cough [Not Recovered/Not Resolved]
  - Burning sensation [Unknown]
  - Miliaria [Recovered/Resolved]
  - Blood pressure diastolic decreased [Unknown]
  - Lower respiratory tract congestion [Recovering/Resolving]
  - Eye swelling [Unknown]
  - Off label use [Unknown]
  - Oxygen saturation decreased [Unknown]
  - Dry skin [Not Recovered/Not Resolved]
  - Nightmare [Not Recovered/Not Resolved]
  - Pruritus [Unknown]
  - Nightmare [Unknown]
  - Blood pressure systolic increased [Unknown]
  - Erythema [Unknown]
  - Intentional product use issue [Unknown]
  - Blood pressure systolic abnormal [Unknown]
  - Feeling abnormal [Not Recovered/Not Resolved]
  - Pulmonary mass [Not Recovered/Not Resolved]
  - Pruritus [Not Recovered/Not Resolved]
  - Fatigue [Unknown]
  - Fear [Not Recovered/Not Resolved]

NARRATIVE: CASE EVENT DATE: 201508
